FAERS Safety Report 12450469 (Version 1)
Quarter: 2016Q2

REPORT INFORMATION
  Report Type: Spontaneous
  Country: IL (occurrence: IL)
  Receive Date: 20160609
  Receipt Date: 20160609
  Transmission Date: 20160815
  Serious: Yes (Hospitalization)
  Sender: FDA-Public Use
  Company Number: PHHY2016IL077857

PATIENT
  Sex: Female

DRUGS (1)
  1. ZYKADIA [Suspect]
     Active Substance: CERITINIB
     Indication: NON-SMALL CELL LUNG CANCER
     Dosage: 150 MG, UNK
     Route: 065

REACTIONS (6)
  - Dyspnoea [Unknown]
  - Pleural effusion [Unknown]
  - Pericarditis [Unknown]
  - Back pain [Unknown]
  - Dyspnoea exertional [Unknown]
  - Drug intolerance [Unknown]
